FAERS Safety Report 5679985-1 (Version None)
Quarter: 2008Q1

REPORT INFORMATION
  Report Type: 
  Country: None (occurrence: None)
  Receive Date: 20080325
  Receipt Date: 20080325
  Transmission Date: 20080703
  Serious: Yes (Other)
  Sender: FDA-Public Use
  Company Number: None

PATIENT
  Sex: Male
  Weight: 49.8957 kg

DRUGS (1)
  1. CUBICIN [Suspect]
     Indication: ARTHROPATHY
     Dosage: 300MG Q24HRS IVPB
     Route: 042
     Dates: start: 20080312, end: 20080319

REACTIONS (2)
  - BLOOD CREATINE PHOSPHOKINASE INCREASED [None]
  - PAIN IN EXTREMITY [None]
